FAERS Safety Report 20922908 (Version 2)
Quarter: 2022Q2

REPORT INFORMATION
  Report Type: Spontaneous
  Country: US (occurrence: US)
  Receive Date: 20220607
  Receipt Date: 20220617
  Transmission Date: 20220721
  Serious: No
  Sender: FDA-Public Use
  Company Number: US-LUPIN PHARMACEUTICALS INC.-2022-08017

PATIENT
  Sex: Female

DRUGS (1)
  1. ALBUTEROL SULFATE [Suspect]
     Active Substance: ALBUTEROL SULFATE
     Indication: Product used for unknown indication
     Dosage: 1 DOSAGE FORM, EVERY 4 TO 6 HOURS
     Dates: start: 202203

REACTIONS (4)
  - Wrong technique in product usage process [Unknown]
  - Device deposit issue [Unknown]
  - Product substitution issue [Unknown]
  - No adverse event [Unknown]
